FAERS Safety Report 6173187-0 (Version None)
Quarter: 2009Q2

REPORT INFORMATION
  Report Type: 
  Country: None (occurrence: None)
  Receive Date: 20090430
  Receipt Date: 20090423
  Transmission Date: 20091009
  Serious: Yes (Death)
  Sender: FDA-Public Use
  Company Number: JP-PFIZER INC-2008091820

PATIENT

DRUGS (11)
  1. SUNITINIB MALATE [Suspect]
     Indication: COLORECTAL CANCER
     Dosage: 37.5 MG, 1X/DAY
     Route: 048
     Dates: start: 20081015, end: 20081029
  2. IRINOTECAN HCL [Suspect]
     Indication: COLORECTAL CANCER
     Dosage: 261 MG,EVERY 2 WEEKS
     Dates: start: 20081015, end: 20081015
  3. LEUCOVORIN CALCIUM [Suspect]
     Indication: COLORECTAL CANCER
     Dosage: 290 MG, EVERY 2 WEEKS
     Route: 042
     Dates: start: 20081015, end: 20081015
  4. *FLUOROURACIL [Suspect]
     Indication: COLORECTAL CANCER
     Dosage: 580 MG, EVERY 2 WEEKS
     Route: 042
     Dates: start: 20081015, end: 20081015
  5. *FLUOROURACIL [Suspect]
     Dosage: 3480 MG, UNK
     Route: 042
     Dates: start: 20081015, end: 20081017
  6. MAGNESIUM OXIDE [Concomitant]
  7. DEXAMETHASONE [Concomitant]
     Route: 048
     Dates: start: 20081016, end: 20081019
  8. ZOPICLONE [Concomitant]
  9. RAMOSETRON HYDROCHLORIDE [Concomitant]
     Route: 048
     Dates: start: 20081015, end: 20081017
  10. LEVOFLOXACIN [Concomitant]
     Route: 048
     Dates: start: 20081029, end: 20081029
  11. KN 1A [Concomitant]
     Route: 042
     Dates: start: 20081029, end: 20081029

REACTIONS (1)
  - MYOCARDIAL INFARCTION [None]
